FAERS Safety Report 4278961-3 (Version None)
Quarter: 2004Q1

REPORT INFORMATION
  Report Type: 
  Country: None (occurrence: None)
  Receive Date: 20040126
  Receipt Date: 20040119
  Transmission Date: 20041129
  Serious: Yes (Hospitalization)
  Sender: FDA-Public Use
  Company Number: IT-ROCHE-356327

PATIENT
  Age: 64 Year
  Sex: Female

DRUGS (1)
  1. PEGASYS [Suspect]
     Route: 058
     Dates: start: 20030523, end: 20031219

REACTIONS (3)
  - EPISTAXIS [None]
  - GINGIVAL BLEEDING [None]
  - THROMBOCYTOPENIA [None]
